FAERS Safety Report 7274917-7 (Version None)
Quarter: 2010Q4

REPORT INFORMATION
  Report Type: 
  Country: None (occurrence: None)
  Receive Date: 20101206
  Receipt Date: 20100826
  Transmission Date: 20110411
  Serious: No
  Sender: FDA-Public Use
  Company Number: 2010SP046353

PATIENT
  Age: 70 Year
  Sex: Female

DRUGS (5)
  1. SAPHRIS [Suspect]
     Indication: BIPOLAR DISORDER
     Dosage: 20 MG;HS;SL
     Route: 060
     Dates: start: 20100429
  2. SAPHRIS [Suspect]
     Indication: DEPRESSION
     Dosage: 20 MG;HS;SL
     Route: 060
     Dates: start: 20100429
  3. ADDERALL 10 [Concomitant]
  4. FLUOXETINE [Concomitant]
  5. LORAZEPAM [Concomitant]

REACTIONS (2)
  - INAPPROPRIATE SCHEDULE OF DRUG ADMINISTRATION [None]
  - TOOTH DISCOLOURATION [None]
